FAERS Safety Report 20950660 (Version 1)
Quarter: 2022Q2

REPORT INFORMATION
  Report Type: Spontaneous
  Country: US (occurrence: US)
  Receive Date: 20220613
  Receipt Date: 20220613
  Transmission Date: 20220721
  Serious: No
  Sender: FDA-Public Use
  Company Number: US-DSJP-DSU-2022-119646

PATIENT
  Sex: Female

DRUGS (1)
  1. ENHERTU [Suspect]
     Active Substance: FAM-TRASTUZUMAB DERUXTECAN-NXKI
     Indication: Malignant lymphoid neoplasm
     Dosage: 300 MG, ONCE EVERY 3 WK
     Route: 042
     Dates: start: 20210427

REACTIONS (2)
  - Dyskinesia [Unknown]
  - Off label use [Unknown]
